FAERS Safety Report 12159177 (Version 1)
Quarter: 2016Q1

REPORT INFORMATION
  Report Type: Spontaneous
  Country: US (occurrence: None)
  Receive Date: 20160307
  Receipt Date: 20160307
  Transmission Date: 20160526
  Serious: No
  Sender: FDA-Public Use
  Company Number: None

PATIENT
  Age: 46 Year
  Sex: Female

DRUGS (13)
  1. TYLENOL [Concomitant]
     Active Substance: ACETAMINOPHEN
  2. MOTRIN IB [Concomitant]
     Active Substance: IBUPROFEN
  3. EFFEXOR [Concomitant]
     Active Substance: VENLAFAXINE HYDROCHLORIDE
  4. GABAPENTIN. [Concomitant]
     Active Substance: GABAPENTIN
  5. VITAMIN D [Concomitant]
     Active Substance: CHOLECALCIFEROL
  6. OXYCODONE AND ACETAMINOPHEN [Concomitant]
     Active Substance: ACETAMINOPHEN\OXYCODONE HYDROCHLORIDE
  7. LETROZOLE. [Concomitant]
     Active Substance: LETROZOLE
  8. LORAZEPAM. [Concomitant]
     Active Substance: LORAZEPAM
  9. IBRANCE [Suspect]
     Active Substance: PALBOCICLIB
     Indication: BREAST CANCER
     Dosage: 100 MG QD1-21 THEN 7 OFF ORAL
     Route: 048
     Dates: start: 20150430
  10. BREO ELLIPTA INHALER [Concomitant]
  11. PROTONIX [Concomitant]
     Active Substance: PANTOPRAZOLE SODIUM
  12. ONDANSETRON [Concomitant]
     Active Substance: ONDANSETRON
  13. L-LYSINE [Concomitant]
     Active Substance: LYSINE

REACTIONS (4)
  - Alopecia [None]
  - Heart rate increased [None]
  - Dyspnoea [None]
  - Blood count abnormal [None]

NARRATIVE: CASE EVENT DATE: 201504
